FAERS Safety Report 7457782-4 (Version None)
Quarter: 2011Q2

REPORT INFORMATION
  Report Type: 
  Country: None (occurrence: None)
  Receive Date: 20110504
  Receipt Date: 20110421
  Transmission Date: 20111010
  Serious: Yes (Death, Other)
  Sender: FDA-Public Use
  Company Number: RO-ROCHE-773605

PATIENT

DRUGS (4)
  1. NOVOMIX [Concomitant]
  2. PEGINTERFERON ALFA-2A [Suspect]
     Route: 065
     Dates: start: 20100526
  3. BLINDED TENOFOVIR [Suspect]
     Route: 065
     Dates: start: 20100526
  4. PEGINTERFERON ALFA-2A [Suspect]
     Dosage: DOSE REDUCTION
     Route: 065
     Dates: start: 20100801

REACTIONS (4)
  - THROMBOCYTOPENIA [None]
  - ALANINE AMINOTRANSFERASE INCREASED [None]
  - CARDIAC FAILURE [None]
  - BLOOD BILIRUBIN INCREASED [None]
